FAERS Safety Report 9106045 (Version 1)
Quarter: 2013Q1

REPORT INFORMATION
  Report Type: Spontaneous
  Country: US (occurrence: US)
  Receive Date: 20130220
  Receipt Date: 20130220
  Transmission Date: 20140127
  Serious: Yes (Other)
  Sender: FDA-Public Use
  Company Number: US-FRI-1000008226

PATIENT
  Age: 66 Year
  Sex: Female

DRUGS (8)
  1. ARMOUR THYROID [Suspect]
     Indication: HYPOTHYROIDISM
     Dosage: 75 MG
     Route: 048
     Dates: start: 1996
  2. ARMOUR THYROID [Suspect]
     Indication: HYPOTHYROIDISM
     Dosage: 90 MG
     Route: 048
     Dates: end: 20130210
  3. VALIUM [Suspect]
  4. ALIGN [Suspect]
     Indication: IRRITABLE BOWEL SYNDROME
  5. INDERAL [Concomitant]
  6. VITAMIN C [Concomitant]
     Indication: HYPOVITAMINOSIS
  7. VITAMIN D [Concomitant]
     Indication: HYPOVITAMINOSIS
  8. ZINC [Concomitant]
     Indication: HYPOVITAMINOSIS

REACTIONS (12)
  - Hypertension [Unknown]
  - Dizziness [Not Recovered/Not Resolved]
  - Ulcer [Recovering/Resolving]
  - Gastrooesophageal reflux disease [Unknown]
  - Cholecystitis [Recovered/Resolved]
  - Blood thyroid stimulating hormone decreased [Unknown]
  - Headache [Unknown]
  - Rash [Unknown]
  - Dyspepsia [Not Recovered/Not Resolved]
  - Dysgeusia [Not Recovered/Not Resolved]
  - Fall [Recovered/Resolved]
  - Wrist fracture [Recovered/Resolved]
